FAERS Safety Report 12165282 (Version 2)
Quarter: 2016Q4

REPORT INFORMATION
  Report Type: Spontaneous
  Country: JP (occurrence: JP)
  Receive Date: 20160309
  Receipt Date: 20161014
  Transmission Date: 20170207
  Serious: Yes (Other)
  Sender: FDA-Public Use
  Company Number: JP-PFIZER INC-2016143703

PATIENT
  Age: 52 Year
  Sex: Female

DRUGS (11)
  1. GRACEPTOR [Suspect]
     Active Substance: TACROLIMUS
     Indication: RENAL TRANSPLANT
     Route: 048
  2. CERTICAN [Suspect]
     Active Substance: EVEROLIMUS
     Indication: RENAL TRANSPLANT
     Route: 048
  3. ESTRIEL [Suspect]
     Active Substance: ESTRIOL
     Indication: MENOPAUSAL SYMPTOMS
     Dosage: 1 MG, 2X/DAY
     Route: 048
     Dates: start: 20160107, end: 20160113
  4. RISEDRONATE [Concomitant]
     Active Substance: RISEDRONATE SODIUM
  5. ZOLPIDEM [Concomitant]
     Active Substance: ZOLPIDEM\ZOLPIDEM TARTRATE
  6. BROTIZOLAM [Concomitant]
     Active Substance: BROTIZOLAM
  7. MEDROL [Suspect]
     Active Substance: METHYLPREDNISOLONE
     Indication: RENAL TRANSPLANT
     Route: 048
  8. RABEPRAZOLE [Concomitant]
     Active Substance: RABEPRAZOLE
  9. MIYA-BM [Concomitant]
     Active Substance: CLOSTRIDIUM BUTYRICUM SPORES STRAIN M-55
  10. FLUNITRAZEPAM [Concomitant]
     Active Substance: FLUNITRAZEPAM
  11. SULFAMETHOXAZOLE AND TRIMETHOPRIM [Concomitant]
     Active Substance: SULFAMETHOXAZOLE\TRIMETHOPRIM

REACTIONS (1)
  - Deep vein thrombosis [Recovering/Resolving]
